FAERS Safety Report 4695533-7 (Version None)
Quarter: 2005Q2

REPORT INFORMATION
  Report Type: 
  Country: None (occurrence: None)
  Receive Date: 20050608
  Receipt Date: 20050211
  Transmission Date: 20051028
  Serious: Yes (Other)
  Sender: FDA-Public Use
  Company Number: A03200403872

PATIENT
  Age: 52 Year
  Sex: Male
  Weight: 66.3159 kg

DRUGS (6)
  1. ELOXATIN [Suspect]
     Indication: COLORECTAL CANCER METASTATIC
     Dosage: INTRAVENOUS NOS
     Route: 042
     Dates: start: 20041119, end: 20041119
  2. WARFARIN SODIUM [Concomitant]
  3. INTERFERON BETA-1B [Concomitant]
  4. FLUOROURACIL [Concomitant]
  5. LEUCOVORIN [Concomitant]
  6. BEVACIZUMAB [Concomitant]

REACTIONS (2)
  - INJECTION SITE EXTRAVASATION [None]
  - PLEURITIC PAIN [None]
